FAERS Safety Report 18254475 (Version 1)
Quarter: 2020Q3

REPORT INFORMATION
  Report Type: Spontaneous
  Country: JP (occurrence: JP)
  Receive Date: 20200911
  Receipt Date: 20200911
  Transmission Date: 20201103
  Serious: Yes (Other)
  Sender: FDA-Public Use
  Company Number: JP-TELIGENT, INC-20200900049

PATIENT
  Age: 69 Year
  Sex: Female

DRUGS (2)
  1. LIDOCAINE. [Concomitant]
     Active Substance: LIDOCAINE
     Indication: ANAESTHESIA
     Dosage: UNK
     Route: 061
  2. TRIAMCINOLONE ACETONIDE. [Suspect]
     Active Substance: TRIAMCINOLONE ACETONIDE
     Indication: MACULAR OEDEMA
     Dosage: INJECTING 20 MG OF TRIAMCINOLONE ACETONIDE INTO THE POSTERIOR SUBTENON SPACE

REACTIONS (3)
  - Eye infection fungal [Recovered/Resolved]
  - Eye infection [Recovered/Resolved]
  - Eye disorder [Recovered/Resolved]
